FAERS Safety Report 10036190 (Version 1)
Quarter: 2014Q1

REPORT INFORMATION
  Report Type: Report from Study
  Country: MX (occurrence: MX)
  Receive Date: 20140325
  Receipt Date: 20140325
  Transmission Date: 20141002
  Serious: Yes (Hospitalization, Other)
  Sender: FDA-Public Use
  Company Number: PHHY2014MX035017

PATIENT
  Age: 73 Year
  Sex: Female

DRUGS (2)
  1. ONBREZ [Suspect]
     Indication: ASTHMA
     Dosage: 300 UG, DAILY (1 DF)
     Route: 055
     Dates: start: 201306
  2. ONBREZ [Suspect]
     Indication: OFF LABEL USE

REACTIONS (2)
  - Pulmonary oedema [Not Recovered/Not Resolved]
  - Pleural effusion [Not Recovered/Not Resolved]
